FAERS Safety Report 8577890-4 (Version None)
Quarter: 2012Q3

REPORT INFORMATION
  Report Type: 
  Country: None (occurrence: None)
  Receive Date: 20120808
  Receipt Date: 20120731
  Transmission Date: 20120928
  Serious: No
  Sender: FDA-Public Use
  Company Number: US-BIOGENIDEC-2012BI029424

PATIENT
  Sex: Female

DRUGS (3)
  1. TYSABRI [Suspect]
     Route: 042
     Dates: end: 20120412
  2. TYSABRI [Suspect]
     Indication: MULTIPLE SCLEROSIS
     Route: 042
     Dates: start: 20100226
  3. TYSABRI [Suspect]
     Route: 042
     Dates: end: 20120516

REACTIONS (7)
  - DYSPNOEA [None]
  - MUSCULOSKELETAL PAIN [None]
  - HORDEOLUM [None]
  - LOCAL SWELLING [None]
  - HYPOAESTHESIA [None]
  - BACK PAIN [None]
  - SWELLING [None]
